FAERS Safety Report 5487626-1 (Version None)
Quarter: 2007Q4

REPORT INFORMATION
  Report Type: 
  Country: None (occurrence: None)
  Receive Date: 20071012
  Receipt Date: 20071012
  Transmission Date: 20080405
  Serious: No
  Sender: FDA-Public Use
  Company Number: None

PATIENT
  Sex: Male
  Weight: 83.6 kg

DRUGS (3)
  1. BEVACIZUMAB (RHUMAB VEGF) [Suspect]
     Dosage: 762 MG
  2. CAMPTOSAR [Suspect]
     Dosage: 588 MG
  3. ELOXATIN [Suspect]
     Dosage: 334 MG

REACTIONS (4)
  - ACTIVITIES OF DAILY LIVING IMPAIRED [None]
  - DRUG TOXICITY [None]
  - FATIGUE [None]
  - IMPAIRED WORK ABILITY [None]
